FAERS Safety Report 4490727-8 (Version None)
Quarter: 2004Q4

REPORT INFORMATION
  Report Type: 
  Country: None (occurrence: None)
  Receive Date: 20041102
  Receipt Date: 20040927
  Transmission Date: 20050328
  Serious: Yes (Life-Threatening)
  Sender: FDA-Public Use
  Company Number: PHBS2004JP12889

PATIENT
  Age: 41 Year
  Sex: Female

DRUGS (1)
  1. LAMISIL [Suspect]
     Indication: NAIL TINEA
     Dosage: 125 MG/DAY
     Route: 048
     Dates: start: 20040908, end: 20040926

REACTIONS (10)
  - BLOOD PRESSURE DECREASED [None]
  - DECREASED APPETITE [None]
  - HYPOTENSION [None]
  - NUCHAL RIGIDITY [None]
  - PAIN [None]
  - PERIPHERAL COLDNESS [None]
  - PRURITUS [None]
  - SHOCK [None]
  - SLEEP DISORDER [None]
  - URTICARIA [None]
